FAERS Safety Report 7807994-2 (Version None)
Quarter: 2011Q4

REPORT INFORMATION
  Report Type: 
  Country: None (occurrence: None)
  Receive Date: 20111011
  Receipt Date: 20111011
  Transmission Date: 20120403
  Serious: Yes (Hospitalization)
  Sender: FDA-Public Use
  Company Number: None

PATIENT
  Age: 72 Year
  Sex: Female

DRUGS (12)
  1. COUMADIN [Suspect]
     Indication: ARTERIOVENOUS FISTULA THROMBOSIS
     Dosage: 2.5 MG
     Route: 048
  2. LANTUS [Concomitant]
  3. GLUCOTROL [Concomitant]
  4. CATAPRES [Concomitant]
  5. NORVASC [Concomitant]
  6. FLORASTOR [Concomitant]
  7. MILK OF MAG [Concomitant]
  8. COREG [Concomitant]
  9. TENVELA [Concomitant]
  10. OMEPRAZOLE [Concomitant]
  11. ZEMPLAR [Concomitant]
  12. TYLENOL-500 [Concomitant]

REACTIONS (1)
  - UPPER GASTROINTESTINAL HAEMORRHAGE [None]
